FAERS Safety Report 5670992-1 (Version None)
Quarter: 2008Q1

REPORT INFORMATION
  Report Type: 
  Country: None (occurrence: None)
  Receive Date: 20080318
  Receipt Date: 20080311
  Transmission Date: 20080703
  Serious: Yes (Hospitalization)
  Sender: FDA-Public Use
  Company Number: DE-ABBOTT-08P-062-0441867-00

PATIENT
  Sex: Female

DRUGS (1)
  1. ERGENYL CHRONOSHERE [Suspect]
     Indication: MYOCLONIC EPILEPSY
     Route: 048
     Dates: start: 20071220, end: 20080207

REACTIONS (11)
  - ALANINE AMINOTRANSFERASE INCREASED [None]
  - ASPARTATE AMINOTRANSFERASE INCREASED [None]
  - CONVULSION [None]
  - CULTURE STOOL [None]
  - DERMATITIS [None]
  - DIARRHOEA [None]
  - HEPATOCELLULAR INJURY [None]
  - MEDICATION RESIDUE [None]
  - PAIN OF SKIN [None]
  - PYREXIA [None]
  - VOMITING [None]
